FAERS Safety Report 11980848 (Version 1)
Quarter: 2016Q1

REPORT INFORMATION
  Report Type: Spontaneous
  Country: US (occurrence: US)
  Receive Date: 20160129
  Receipt Date: 20160129
  Transmission Date: 20160526
  Serious: No
  Sender: FDA-Public Use
  Company Number: US-009507513-1601USA011607

PATIENT

DRUGS (2)
  1. REBETOL [Suspect]
     Active Substance: RIBAVIRIN
     Indication: ADENOVIRUS INFECTION
     Dosage: UNSPECIFIED DOSAGE
     Dates: start: 2011
  2. REBETOL [Suspect]
     Active Substance: RIBAVIRIN
     Indication: ACUTE RESPIRATORY DISTRESS SYNDROME

REACTIONS (3)
  - Drug administered to patient of inappropriate age [Unknown]
  - Therapeutic response unexpected [Unknown]
  - Off label use [Unknown]

NARRATIVE: CASE EVENT DATE: 2011
